FAERS Safety Report 14060355 (Version 2)
Quarter: 2017Q4

REPORT INFORMATION
  Report Type: Spontaneous
  Country: US (occurrence: US)
  Receive Date: 20171006
  Receipt Date: 20171018
  Transmission Date: 20180321
  Serious: No
  Sender: FDA-Public Use
  Company Number: US-AMGEN-USASP2017129934

PATIENT
  Age: 52 Year
  Sex: Female
  Weight: 34.92 kg

DRUGS (1)
  1. PROLIA [Suspect]
     Active Substance: DENOSUMAB
     Indication: OSTEOPOROSIS POSTMENOPAUSAL
     Dosage: UNK
     Route: 065
     Dates: start: 2015

REACTIONS (5)
  - Pain in jaw [Unknown]
  - Scab [Unknown]
  - Pruritus [Unknown]
  - Skin irritation [Unknown]
  - Arthralgia [Unknown]
